FAERS Safety Report 9290876 (Version 1)
Quarter: 2013Q2

REPORT INFORMATION
  Report Type: Report from Study
  Country: FR (occurrence: FR)
  Receive Date: 20130515
  Receipt Date: 20130515
  Transmission Date: 20140414
  Serious: Yes (Other)
  Sender: FDA-Public Use
  Company Number: FR-BAYER-2013-059863

PATIENT
  Age: 55 Year
  Sex: Male

DRUGS (3)
  1. REGORAFENIB [Suspect]
     Indication: COLORECTAL CANCER METASTATIC
     Dosage: 160 MG/DAY
     Dates: start: 20130123, end: 20130209
  2. REGORAFENIB [Suspect]
     Indication: COLORECTAL CANCER METASTATIC
     Dosage: 120 MG/DAY
     Dates: start: 20130306, end: 20130403
  3. REGORAFENIB [Suspect]
     Indication: COLORECTAL CANCER METASTATIC
     Dosage: 120 MG/DAY
     Dates: start: 20130406

REACTIONS (7)
  - Peripheral ischaemia [Recovered/Resolved]
  - Pain in extremity [Recovered/Resolved]
  - Arteritis [Recovered/Resolved]
  - Venous thrombosis [Recovered/Resolved]
  - Intermittent claudication [Recovered/Resolved]
  - Thrombocytopenia [Unknown]
  - Hypomagnesaemia [Unknown]
